FAERS Safety Report 6004615-9 (Version None)
Quarter: 2008Q4

REPORT INFORMATION
  Report Type: 
  Country: None (occurrence: None)
  Receive Date: 20081216
  Receipt Date: 20080722
  Transmission Date: 20090506
  Serious: No
  Sender: FDA-Public Use
  Company Number: US-BRISTOL-MYERS SQUIBB COMPANY-14271100

PATIENT
  Age: 75 Year
  Sex: Male

DRUGS (1)
  1. PRAVACHOL [Suspect]
     Dosage: 2 DOSAGE FORM = 2 TABLETS
     Dates: end: 20080401

REACTIONS (1)
  - MYALGIA [None]
